FAERS Safety Report 5420717-X (Version None)
Quarter: 2007Q3

REPORT INFORMATION
  Report Type: 
  Country: None (occurrence: None)
  Receive Date: 20070816
  Receipt Date: 20070731
  Transmission Date: 20080115
  Serious: Yes (Life-Threatening)
  Sender: FDA-Public Use
  Company Number: 8025852

PATIENT
  Age: 65 Year
  Sex: Male
  Weight: 95 kg

DRUGS (15)
  1. KEPPRA [Suspect]
     Indication: EPILEPSY
     Dosage: 750 MG 2/D PO
     Route: 048
     Dates: start: 20070321, end: 20070602
  2. KEPPRA [Suspect]
     Indication: EPILEPSY
     Dosage: 1000 MG 2/D PO
     Route: 048
     Dates: start: 20070603, end: 20070617
  3. CYTARABINE [Suspect]
     Indication: ACUTE MYELOID LEUKAEMIA
     Dosage: 200 MG/M2 /D IV
     Route: 042
     Dates: start: 20070326, end: 20070517
  4. AVASTIN [Suspect]
     Indication: ACUTE MYELOID LEUKAEMIA
     Dosage: 5 MG/M2 /D IV
     Route: 042
     Dates: start: 20070326, end: 20070526
  5. FRISIUM [Concomitant]
  6. FUNGIZONE [Concomitant]
  7. METOPROLOLSUCCINAAT RETARD [Concomitant]
  8. KONAKION [Concomitant]
  9. HALDOL SOLUTAB [Concomitant]
  10. FLUCONAZOLE [Concomitant]
  11. LANOXIN [Concomitant]
  12. THIAMINE [Concomitant]
  13. THIAMINE [Concomitant]
  14. CIPROFLOXACIN HCL [Concomitant]
  15. MERONEM /01250501/ [Concomitant]

REACTIONS (1)
  - ENCEPHALOPATHY [None]
